FAERS Safety Report 10764604 (Version 5)
Quarter: 2020Q1

REPORT INFORMATION
  Report Type: Report from Study
  Country: US (occurrence: US)
  Receive Date: 20150205
  Receipt Date: 20200207
  Transmission Date: 20200409
  Serious: Yes (Hospitalization, Other)
  Sender: FDA-Public Use
  Company Number: US-AMGEN-USASP2015008868

PATIENT
  Age: 72 Year
  Sex: Female

DRUGS (1)
  1. ENBREL [Suspect]
     Active Substance: ETANERCEPT
     Indication: RHEUMATOID ARTHRITIS
     Dosage: 50 MG, QWK
     Route: 065
     Dates: start: 20060101

REACTIONS (14)
  - Skin lesion [Unknown]
  - Acrochordon [Unknown]
  - Arthralgia [Unknown]
  - Productive cough [Not Recovered/Not Resolved]
  - Pyrexia [Not Recovered/Not Resolved]
  - Arthritis [Not Recovered/Not Resolved]
  - Bronchitis [Unknown]
  - Bronchiectasis [Not Recovered/Not Resolved]
  - Condition aggravated [Unknown]
  - Groin pain [Unknown]
  - Pneumonia [Unknown]
  - Interstitial lung disease [Unknown]
  - Inappropriate schedule of product administration [Unknown]
  - Hyperkeratosis [Unknown]

NARRATIVE: CASE EVENT DATE: 201411
